FAERS Safety Report 5137625-4 (Version None)
Quarter: 2006Q4

REPORT INFORMATION
  Report Type: 
  Country: None (occurrence: None)
  Receive Date: 20061030
  Receipt Date: 20061017
  Transmission Date: 20070319
  Serious: Yes (Disabling, Other)
  Sender: FDA-Public Use
  Company Number: US-JNJFOC-20061005989

PATIENT
  Sex: Female
  Weight: 70.76 kg

DRUGS (6)
  1. MOTRIN [Suspect]
     Indication: ARTHRITIS
  2. MOTRIN [Suspect]
     Indication: PAIN
  3. LISINOPRIL [Concomitant]
     Indication: DRUG USE FOR UNKNOWN INDICATION
  4. METFORMIN HCL [Concomitant]
     Indication: DIABETES MELLITUS
  5. ISOSORBIDE [Concomitant]
     Indication: CARDIAC DISORDER
  6. UNSPECIFIED MEDICATION [Concomitant]
     Indication: PAIN

REACTIONS (8)
  - BLOOD CHOLESTEROL INCREASED [None]
  - BLOOD URINE PRESENT [None]
  - GASTRIC DISORDER [None]
  - GASTROINTESTINAL DISORDER [None]
  - HYPERTENSION [None]
  - HYSTERECTOMY [None]
  - NEUROPATHY PERIPHERAL [None]
  - SENSATION OF PRESSURE [None]
